FAERS Safety Report 17327736 (Version 1)
Quarter: 2020Q1

REPORT INFORMATION
  Report Type: Spontaneous
  Country: SE (occurrence: SE)
  Receive Date: 20200127
  Receipt Date: 20200127
  Transmission Date: 20200409
  Serious: Yes (Hospitalization)
  Sender: FDA-Public Use
  Company Number: SE-MYLANLABS-2020M1009007

PATIENT
  Age: 44 Year
  Sex: Female

DRUGS (5)
  1. LAMOTRIGINE. [Suspect]
     Active Substance: LAMOTRIGINE
     Indication: PRODUCT USED FOR UNKNOWN INDICATION
     Dosage: 1.2 GRAM
     Route: 048
     Dates: start: 20180928, end: 20180928
  2. IMDUR [Suspect]
     Active Substance: ISOSORBIDE MONONITRATE
     Indication: PRODUCT USED FOR UNKNOWN INDICATION
     Dosage: 180 MILLIGRAM
     Route: 048
     Dates: start: 20180928, end: 20180928
  3. LERGIGAN (PROMETHAZINE HYDROCHLORIDE) [Suspect]
     Active Substance: PROMETHAZINE HYDROCHLORIDE
     Indication: PRODUCT USED FOR UNKNOWN INDICATION
     Dosage: 900 MILLIGRAM
     Route: 048
     Dates: start: 20180928, end: 20180928
  4. IMPUGAN                            /00032601/ [Suspect]
     Active Substance: FUROSEMIDE
     Indication: PRODUCT USED FOR UNKNOWN INDICATION
     Dosage: 480 MILLIGRAM
     Route: 048
     Dates: start: 20180928, end: 20180928
  5. PARAFLEX [Suspect]
     Active Substance: CHLORZOXAZONE
     Indication: PRODUCT USED FOR UNKNOWN INDICATION
     Dosage: 6 GRAM
     Route: 048
     Dates: start: 20180928, end: 20180928

REACTIONS (3)
  - Intentional overdose [Unknown]
  - Fatigue [Unknown]
  - Intentional self-injury [Unknown]

NARRATIVE: CASE EVENT DATE: 20180928
